FAERS Safety Report 6571395-8 (Version None)
Quarter: 2010Q1

REPORT INFORMATION
  Report Type: 
  Country: None (occurrence: None)
  Receive Date: 20100205
  Receipt Date: 20100127
  Transmission Date: 20100710
  Serious: Yes (Hospitalization)
  Sender: FDA-Public Use
  Company Number: DE-RANBAXY-2009RR-24738

PATIENT
  Age: 72 Year
  Sex: Female
  Weight: 77 kg

DRUGS (10)
  1. AMLODIPINE [Suspect]
     Indication: HYPERTENSION
     Dosage: UNK
     Route: 048
     Dates: start: 20080501
  2. FENTANYL [Suspect]
     Indication: PAIN
     Dosage: 50 UG, Q1H
     Route: 062
     Dates: start: 20070101
  3. DIOVAN HCT [Suspect]
     Indication: HYPERTENSION
     Dosage: 1 DF, QD
     Route: 048
  4. MICTONORM [Suspect]
     Indication: MICTURITION URGENCY
     Dosage: 30 MG, QD
     Route: 048
  5. ALENDRONIC ACID [Concomitant]
     Indication: OSTEOPOROSIS
     Dosage: 70 MG, 1/WEEK
     Route: 048
     Dates: start: 20080901
  6. CALCIMAGON-D3 [Concomitant]
     Indication: OSTEOPOROSIS
     Dosage: UNK
     Route: 048
     Dates: start: 20080901
  7. GODAMED [Concomitant]
     Indication: CAROTID ARTERY STENOSIS
     Dosage: 100 MG, QD
     Route: 048
  8. PANTOZOL [Concomitant]
     Indication: GASTRITIS PROPHYLAXIS
     Dosage: 40 MG, QD
     Route: 048
  9. PRESOMEN [Concomitant]
     Indication: OSTEOPOROSIS
     Dosage: 0.6 MG, QD
     Route: 048
  10. VIANI [Concomitant]
     Indication: ASTHMA
     Dosage: 1 DF, BID

REACTIONS (1)
  - FAECALOMA [None]
